FAERS Safety Report 9816456 (Version 1)
Quarter: 2014Q1

REPORT INFORMATION
  Report Type: Spontaneous
  Country: US (occurrence: US)
  Receive Date: 20140114
  Receipt Date: 20140114
  Transmission Date: 20141002
  Serious: No
  Sender: FDA-Public Use
  Company Number: US-TEVA-456303USA

PATIENT
  Age: 36 Year
  Sex: Female
  Weight: 112.59 kg

DRUGS (8)
  1. PLAN B ONE-STEP [Suspect]
     Indication: CONTRACEPTION
     Dosage: 1.5 MILLIGRAM DAILY;
     Route: 048
     Dates: start: 20131206, end: 20131206
  2. PROZAC [Concomitant]
     Indication: BIPOLAR DISORDER
  3. BUSPAR [Concomitant]
     Indication: BIPOLAR DISORDER
  4. XANAX [Concomitant]
     Indication: ANXIETY
  5. OXYBUTIN [Concomitant]
     Indication: BLADDER DISORDER
  6. GABAPENTIN [Concomitant]
     Indication: BACK PAIN
  7. ATENOLOL [Concomitant]
     Indication: CARDIAC DISORDER
  8. GEMFIBROZIL [Concomitant]
     Indication: BLOOD CHOLESTEROL INCREASED

REACTIONS (2)
  - Menstruation delayed [Not Recovered/Not Resolved]
  - Menstruation irregular [Not Recovered/Not Resolved]
